FAERS Safety Report 21652418 (Version 1)
Quarter: 2022Q4

REPORT INFORMATION
  Report Type: Spontaneous
  Country: US (occurrence: None)
  Receive Date: 20221123
  Receipt Date: 20221123
  Transmission Date: 20230113
  Serious: Yes (Death)
  Sender: FDA-Public Use
  Company Number: None

PATIENT
  Age: 64 Year
  Sex: Male

DRUGS (1)
  1. BEXAROTENE [Suspect]
     Active Substance: BEXAROTENE
     Indication: T-cell lymphoma
     Dosage: 300MG DAILY ORAL?
     Route: 048
     Dates: start: 202008

REACTIONS (1)
  - Death [None]

NARRATIVE: CASE EVENT DATE: 20221121
